FAERS Safety Report 17904993 (Version 1)
Quarter: 2020Q2

REPORT INFORMATION
  Report Type: Spontaneous
  Country: US (occurrence: US)
  Receive Date: 20200616
  Receipt Date: 20200616
  Transmission Date: 20200714
  Serious: No
  Sender: FDA-Public Use
  Company Number: None

PATIENT
  Sex: Female

DRUGS (1)
  1. GLATIRAMTER ACETATE (12X1ML) [Suspect]
     Active Substance: GLATIRAMER ACETATE
     Indication: MULTIPLE SCLEROSIS
     Route: 058
     Dates: start: 20190724, end: 20190919

REACTIONS (6)
  - Injection site swelling [None]
  - Agitation [None]
  - Pyrexia [None]
  - Product substitution issue [None]
  - Therapy interrupted [None]
  - Abdominal pain [None]
